FAERS Safety Report 4790459-2 (Version None)
Quarter: 2005Q4

REPORT INFORMATION
  Report Type: 
  Country: None (occurrence: None)
  Receive Date: 20051005
  Receipt Date: 20050919
  Transmission Date: 20060501
  Serious: Yes (Death)
  Sender: FDA-Public Use
  Company Number: US_0502113487

PATIENT
  Sex: Male
  Weight: 51 kg

DRUGS (5)
  1. ZYPREXA [Suspect]
     Indication: ATTENTION DEFICIT/HYPERACTIVITY DISORDER
     Dosage: 5 MG/4 DAY
     Dates: start: 20010307, end: 20020108
  2. SEROQUEL [Concomitant]
  3. GEODON [Concomitant]
  4. RISPERDAL [Concomitant]
  5. CONCERTA [Concomitant]

REACTIONS (3)
  - BLOOD CHOLESTEROL INCREASED [None]
  - BLOOD TRIGLYCERIDES INCREASED [None]
  - DIABETES MELLITUS [None]
